FAERS Safety Report 9645716 (Version 1)
Quarter: 2013Q4

REPORT INFORMATION
  Report Type: Spontaneous
  Country: US (occurrence: US)
  Receive Date: 20131025
  Receipt Date: 20131025
  Transmission Date: 20140711
  Serious: No
  Sender: FDA-Public Use
  Company Number: US-MYLANLABS-2013S1018276

PATIENT
  Sex: Female

DRUGS (1)
  1. RIZATRIPTAN BENZOATE TABLETS [Suspect]

REACTIONS (1)
  - Drug effect decreased [Not Recovered/Not Resolved]
